FAERS Safety Report 12487947 (Version 1)
Quarter: 2016Q2

REPORT INFORMATION
  Report Type: Spontaneous
  Country: BR (occurrence: BR)
  Receive Date: 20160622
  Receipt Date: 20160622
  Transmission Date: 20160815
  Serious: Yes (Hospitalization)
  Sender: FDA-Public Use
  Company Number: BR-TORRENT-00003461

PATIENT
  Age: 16 Year
  Sex: Female

DRUGS (3)
  1. LITHIUM. [Concomitant]
     Active Substance: LITHIUM
     Indication: DEPRESSION
     Dosage: ONCE DAILY/ ORAL
     Route: 048
     Dates: start: 201605
  2. QUETIAPINE. [Concomitant]
     Active Substance: QUETIAPINE
     Indication: DEPRESSION
     Dosage: QUETIAPINE 100 MG AND QUETIAPINE 200 MG IN A TOTAL OF 600 MG DAILY/ ORAL
     Route: 048
     Dates: start: 2012
  3. SERENATA [Suspect]
     Active Substance: SERTRALINE HYDROCHLORIDE
     Indication: DEPRESSION
     Dosage: SERENATA 50 MG FOUR TIMES DAILY/ ORAL
     Route: 048
     Dates: start: 2015

REACTIONS (4)
  - Drug ineffective [Recovered/Resolved]
  - Off label use [Not Recovered/Not Resolved]
  - Tremor [Recovering/Resolving]
  - Urinary tract infection [Recovered/Resolved]

NARRATIVE: CASE EVENT DATE: 2015
